FAERS Safety Report 5693291-0 (Version None)
Quarter: 2008Q2

REPORT INFORMATION
  Report Type: 
  Country: None (occurrence: None)
  Receive Date: 20080403
  Receipt Date: 20080326
  Transmission Date: 20081010
  Serious: Yes (Hospitalization, Other)
  Sender: FDA-Public Use
  Company Number: US-ROCHE-555405

PATIENT
  Age: 43 Year
  Sex: Female

DRUGS (6)
  1. PEG-INTERFERON A-2A (RO 25-8310) [Suspect]
     Route: 065
     Dates: start: 20071010
  2. RIBAVIRIN [Suspect]
     Route: 065
     Dates: start: 20071019, end: 20080309
  3. RIBAVIRIN [Suspect]
     Route: 065
     Dates: start: 20080310
  4. ZOLOFT [Concomitant]
     Dates: end: 20080226
  5. WELLBUTRIN [Concomitant]
     Dates: start: 20080226
  6. SEROQUEL [Concomitant]

REACTIONS (2)
  - BLOOD PRESSURE DECREASED [None]
  - FULL BLOOD COUNT DECREASED [None]
